FAERS Safety Report 4351784-2 (Version None)
Quarter: 2004Q2

REPORT INFORMATION
  Report Type: 
  Country: None (occurrence: None)
  Receive Date: 20040429
  Receipt Date: 20040315
  Transmission Date: 20050107
  Serious: No
  Sender: FDA-Public Use
  Company Number: 2004-113777-NL

PATIENT
  Age: 44 Year
  Sex: Female
  Weight: 77.5 kg

DRUGS (2)
  1. NUVARING [Suspect]
     Indication: HORMONE REPLACEMENT THERAPY
     Dosage: DF DAILY VAGINAL
     Route: 067
     Dates: start: 20040201, end: 20040304
  2. ZOLOFT [Concomitant]

REACTIONS (4)
  - ABDOMINAL PAIN [None]
  - HAEMORRHAGE [None]
  - VAGINAL BURNING SENSATION [None]
  - VAGINAL DISCHARGE [None]
